FAERS Safety Report 6025714-1 (Version None)
Quarter: 2008Q4

REPORT INFORMATION
  Report Type: 
  Country: None (occurrence: None)
  Receive Date: 20081231
  Receipt Date: 20081223
  Transmission Date: 20090506
  Serious: Yes (Death)
  Sender: FDA-Public Use
  Company Number: US-MERCK-0812USA05177

PATIENT
  Age: 69 Year
  Sex: Male

DRUGS (14)
  1. ZETIA [Suspect]
     Route: 048
  2. ZESTRIL [Suspect]
     Route: 048
  3. METOPROLOL [Concomitant]
     Route: 048
  4. AMLODIPINE [Concomitant]
     Route: 048
  5. CLONIDINE [Concomitant]
     Route: 048
  6. PHENYL SALICYLATE [Concomitant]
     Route: 048
  7. ALBUTEROL [Concomitant]
     Route: 048
  8. RANITIDINE [Concomitant]
     Route: 048
  9. TIAGABINE HYDROCHLORIDE [Concomitant]
     Route: 048
  10. DIURETIC (UNSPECIFIED) [Concomitant]
     Route: 048
  11. CLOPIDOGREL BISULFATE [Concomitant]
     Route: 048
  12. LORAZEPAM [Concomitant]
     Route: 048
  13. ATORVASTATIN [Concomitant]
     Route: 048
  14. PHENYTOIN [Concomitant]
     Route: 048

REACTIONS (1)
  - COMPLETED SUICIDE [None]
